FAERS Safety Report 8595772 (Version 2)
Quarter: 2014Q1

REPORT INFORMATION
  Report Type: Spontaneous
  Country: US (occurrence: US)
  Receive Date: 20120605
  Receipt Date: 20140121
  Transmission Date: 20141002
  Serious: No
  Sender: FDA-Public Use
  Company Number: US-ASTRAZENECA-2012SE34980

PATIENT
  Sex: Male

DRUGS (7)
  1. NEXIUM [Suspect]
     Indication: GASTROOESOPHAGEAL REFLUX DISEASE
     Route: 048
     Dates: start: 200907, end: 20130806
  2. PEPCID OTC [Concomitant]
     Dates: start: 2005, end: 2008
  3. MILK OF MAGNESIA [Concomitant]
     Dates: start: 2003, end: 2006
  4. ALKA-SELTZER [Concomitant]
     Dates: start: 20060416, end: 2008
  5. TUMS [Concomitant]
     Dosage: 1000 MG 2-3 A DAY
     Dates: start: 20000316, end: 2003
  6. PEPTO-BISMOL [Concomitant]
     Dates: start: 199903, end: 2003
  7. MYLANTA [Concomitant]
     Dates: start: 2005, end: 2012

REACTIONS (5)
  - Osteoporosis [Unknown]
  - Multiple fractures [Unknown]
  - Gastrointestinal disorder [Unknown]
  - Dyspepsia [Unknown]
  - Flatulence [Unknown]
